FAERS Safety Report 10158203 (Version 1)
Quarter: 2014Q2

REPORT INFORMATION
  Report Type: Spontaneous
  Country: US (occurrence: US)
  Receive Date: 20140507
  Receipt Date: 20140507
  Transmission Date: 20141212
  Serious: Yes (Other)
  Sender: FDA-Public Use
  Company Number: US-TEVA-480145USA

PATIENT
  Age: 29 Year
  Sex: Female
  Weight: 58.11 kg

DRUGS (2)
  1. PARAGARD 380A [Suspect]
     Indication: CONTRACEPTION
     Route: 015
     Dates: start: 20140303, end: 20140401
  2. PARAGARD 380A [Suspect]
     Route: 015
     Dates: start: 20140401, end: 20140502

REACTIONS (6)
  - Thrombosis [Unknown]
  - Discomfort [Unknown]
  - Muscle spasms [Unknown]
  - Metrorrhagia [Unknown]
  - Device expulsion [Recovered/Resolved]
  - Device dislocation [Recovered/Resolved]
